FAERS Safety Report 23551438 (Version 1)
Quarter: 2024Q1

REPORT INFORMATION
  Report Type: Spontaneous
  Country: US (occurrence: US)
  Receive Date: 20240222
  Receipt Date: 20240222
  Transmission Date: 20240410
  Serious: Yes (Hospitalization)
  Sender: FDA-Public Use
  Company Number: US-STRIDES ARCOLAB LIMITED-2023SP011246

PATIENT
  Age: 13 Month
  Sex: Male

DRUGS (4)
  1. ETOPOSIDE [Suspect]
     Active Substance: ETOPOSIDE
     Indication: Glioneuronal tumour
     Dosage: UNK, CYCLICAL, FOR EIGHT CYCLES
     Route: 065
  2. CARBOPLATIN [Suspect]
     Active Substance: CARBOPLATIN
     Indication: Glioneuronal tumour
     Dosage: UNK, CYCLICAL, FOR EIGHT CYCLES
     Route: 065
  3. CARBOPLATIN [Suspect]
     Active Substance: CARBOPLATIN
     Dosage: UNK, CYCLICAL, ADDITIONAL FOUR CYCLES
     Route: 065
  4. CYCLOPHOSPHAMIDE [Suspect]
     Active Substance: CYCLOPHOSPHAMIDE
     Indication: Glioneuronal tumour
     Dosage: UNK, CYCLICAL, FOR EIGHT CYCLES
     Route: 065

REACTIONS (3)
  - Febrile neutropenia [Unknown]
  - Cytopenia [Unknown]
  - Off label use [Unknown]
